FAERS Safety Report 22660577 (Version 2)
Quarter: 2025Q1

REPORT INFORMATION
  Report Type: Spontaneous
  Country: US (occurrence: US)
  Receive Date: 20230630
  Receipt Date: 20250305
  Transmission Date: 20250409
  Serious: No
  Sender: VERTEX
  Company Number: US-VERTEX PHARMACEUTICALS-2023-009397

PATIENT
  Age: 22 Year

DRUGS (1)
  1. TRIKAFTA [Suspect]
     Active Substance: ELEXACAFTOR\IVACAFTOR\TEZACAFTOR
     Indication: Cystic fibrosis
     Route: 048
     Dates: start: 2020

REACTIONS (7)
  - Attention deficit hyperactivity disorder [Unknown]
  - Cognitive disorder [Not Recovered/Not Resolved]
  - Nephrolithiasis [Unknown]
  - Gastrointestinal microorganism overgrowth [Unknown]
  - Impaired quality of life [Not Recovered/Not Resolved]
  - Pruritus [Unknown]
  - Acne [Unknown]

NARRATIVE: CASE EVENT DATE: 20200101
